FAERS Safety Report 20228433 (Version 6)
Quarter: 2024Q2

REPORT INFORMATION
  Report Type: Report from Study
  Country: US (occurrence: US)
  Receive Date: 20211224
  Receipt Date: 20240425
  Transmission Date: 20240716
  Serious: Yes (Other)
  Sender: FDA-Public Use
  Company Number: US-TAKEDA-US201610284

PATIENT
  Age: 58 Year
  Sex: Female

DRUGS (17)
  1. HUMAN C1-ESTERASE INHIBITOR [Suspect]
     Active Substance: HUMAN C1-ESTERASE INHIBITOR
     Indication: Prophylaxis
     Dosage: 1000 INTERNATIONAL UNIT, Q72H
     Route: 065
  2. HUMAN C1-ESTERASE INHIBITOR [Suspect]
     Active Substance: HUMAN C1-ESTERASE INHIBITOR
     Indication: Prophylaxis
     Dosage: 1000 INTERNATIONAL UNIT, Q72H
     Route: 065
  3. HUMAN C1-ESTERASE INHIBITOR [Suspect]
     Active Substance: HUMAN C1-ESTERASE INHIBITOR
     Indication: Prophylaxis
     Dosage: 1000 INTERNATIONAL UNIT, Q72H
     Route: 065
  4. HUMAN C1-ESTERASE INHIBITOR [Suspect]
     Active Substance: HUMAN C1-ESTERASE INHIBITOR
     Dosage: 1000 INTERNATIONAL UNIT
     Route: 058
  5. HUMAN C1-ESTERASE INHIBITOR [Suspect]
     Active Substance: HUMAN C1-ESTERASE INHIBITOR
     Dosage: 1000 INTERNATIONAL UNIT
     Route: 058
  6. HUMAN C1-ESTERASE INHIBITOR [Suspect]
     Active Substance: HUMAN C1-ESTERASE INHIBITOR
     Dosage: 1000 INTERNATIONAL UNIT
     Route: 058
  7. HUMAN C1-ESTERASE INHIBITOR [Suspect]
     Active Substance: HUMAN C1-ESTERASE INHIBITOR
     Dosage: UNK, Q72H
     Route: 050
  8. HUMAN C1-ESTERASE INHIBITOR [Suspect]
     Active Substance: HUMAN C1-ESTERASE INHIBITOR
     Dosage: UNK, Q72H
     Route: 050
  9. HUMAN C1-ESTERASE INHIBITOR [Suspect]
     Active Substance: HUMAN C1-ESTERASE INHIBITOR
     Dosage: UNK, Q72H
     Route: 050
  10. FIRAZYR [Suspect]
     Active Substance: ICATIBANT ACETATE
     Indication: Hereditary angioedema
     Dosage: 30 MILLIGRAM
     Route: 058
  11. FIRAZYR [Suspect]
     Active Substance: ICATIBANT ACETATE
     Indication: Hereditary angioedema
     Dosage: 30 MILLIGRAM
     Route: 058
  12. TAKHZYRO [Suspect]
     Active Substance: LANADELUMAB-FLYO
     Indication: Hereditary angioedema
     Dosage: 1 DOSAGE FORM, Q4WEEKS
     Route: 058
  13. TAKHZYRO [Suspect]
     Active Substance: LANADELUMAB-FLYO
     Indication: Hereditary angioedema
     Dosage: 1 DOSAGE FORM, Q4WEEKS
     Route: 058
  14. TAKHZYRO [Suspect]
     Active Substance: LANADELUMAB-FLYO
     Indication: Hereditary angioedema
     Dosage: 1 DOSAGE FORM, Q4WEEKS
     Route: 058
  15. TAKHZYRO [Suspect]
     Active Substance: LANADELUMAB-FLYO
     Indication: Prophylaxis
     Dosage: 300 MILLIGRAM, Q2WEEKS
     Route: 050
  16. TAKHZYRO [Suspect]
     Active Substance: LANADELUMAB-FLYO
     Indication: Prophylaxis
     Dosage: 300 MILLIGRAM, Q2WEEKS
     Route: 050
  17. TAKHZYRO [Suspect]
     Active Substance: LANADELUMAB-FLYO
     Indication: Prophylaxis
     Dosage: 300 MILLIGRAM, Q2WEEKS
     Route: 050

REACTIONS (5)
  - Multiple sclerosis [Unknown]
  - Insomnia [Unknown]
  - Drug ineffective [Recovering/Resolving]
  - Hereditary angioedema [Not Recovered/Not Resolved]
  - Expired product administered [Recovered/Resolved]

NARRATIVE: CASE EVENT DATE: 20220425
